FAERS Safety Report 16994649 (Version 1)
Quarter: 2019Q4

REPORT INFORMATION
  Report Type: Spontaneous
  Country: US (occurrence: US)
  Receive Date: 20191105
  Receipt Date: 20191105
  Transmission Date: 20200122
  Serious: Yes (Death, Hospitalization)
  Sender: FDA-Public Use
  Company Number: US-BAYER-2019-197989

PATIENT
  Age: 70 Year
  Sex: Female

DRUGS (1)
  1. VITRAKVI [Suspect]
     Active Substance: LAROTRECTINIB
     Indication: TRIPLE NEGATIVE BREAST CANCER
     Dosage: 100 MG, BID
     Route: 048
     Dates: start: 20190924

REACTIONS (2)
  - Dyspnoea [None]
  - Pain [None]

NARRATIVE: CASE EVENT DATE: 20190929
